FAERS Safety Report 15090857 (Version 1)
Quarter: 2018Q2

REPORT INFORMATION
  Report Type: Spontaneous
  Country: None (occurrence: US)
  Receive Date: 20180629
  Receipt Date: 20180629
  Transmission Date: 20180711
  Serious: Yes (Other)
  Sender: FDA-Public Use
  Company Number: US-MEDAC PHARMA, INC.-2051104

PATIENT
  Sex: Female

DRUGS (7)
  1. METHOTREXATE. [Suspect]
     Active Substance: METHOTREXATE
  2. HUMIRA [Concomitant]
     Active Substance: ADALIMUMAB
  3. RASUVO [Suspect]
     Active Substance: METHOTREXATE SODIUM
     Indication: RHEUMATOID ARTHRITIS
     Route: 058
  4. ACTEMRA [Concomitant]
     Active Substance: TOCILIZUMAB
  5. CIMZIA [Concomitant]
     Active Substance: CERTOLIZUMAB PEGOL
  6. ENBREL [Suspect]
     Active Substance: ETANERCEPT
  7. XELJANZ [Concomitant]
     Active Substance: TOFACITINIB CITRATE

REACTIONS (3)
  - Rheumatoid arthritis [Unknown]
  - Urticaria [Unknown]
  - Abdominal discomfort [Unknown]
